FAERS Safety Report 8866072 (Version 2)
Quarter: 2012Q4

REPORT INFORMATION
  Report Type: 
  Country: JP (occurrence: JP)
  Receive Date: 20121025
  Receipt Date: 20121205
  Transmission Date: 20130627
  Serious: Yes (Other)
  Sender: FDA-Public Use
  Company Number: JP-PFIZER INC-2012259755

PATIENT
  Age: 61 Year
  Sex: Female

DRUGS (2)
  1. SULFASALAZINE [Suspect]
     Indication: COLITIS ULCERATIVE ACUTE EPISODE
     Dosage: UNK
  2. PREDNISOLONE [Concomitant]
     Dosage: UNK

REACTIONS (1)
  - Pancytopenia [Unknown]
